FAERS Safety Report 8154346-4 (Version None)
Quarter: 2012Q1

REPORT INFORMATION
  Report Type: 
  Country: None (occurrence: None)
  Receive Date: 20120221
  Receipt Date: 20120214
  Transmission Date: 20120608
  Serious: Yes (Hospitalization)
  Sender: FDA-Public Use
  Company Number: CA-B.I. PHARMACEUTICALS,INC./RIDGEFIELD-2012-CN-00304CN

PATIENT
  Age: 70 Year
  Sex: Male

DRUGS (7)
  1. LIPITOR [Concomitant]
     Route: 065
  2. METFORMIN HCL [Concomitant]
     Route: 065
  3. MULTAQ [Concomitant]
     Route: 065
  4. DOMPERIDONE [Concomitant]
     Route: 065
  5. TRAMADOL HYDROCHLORIDE/ACETAMINOPHEN [Concomitant]
     Route: 065
  6. LORAZEPAM [Concomitant]
     Route: 065
  7. PRADAXA [Suspect]
     Dosage: 150 MG
     Route: 048

REACTIONS (11)
  - BLOOD ALKALINE PHOSPHATASE ABNORMAL [None]
  - ALANINE AMINOTRANSFERASE ABNORMAL [None]
  - ASPARTATE AMINOTRANSFERASE ABNORMAL [None]
  - HAEMOGLOBIN ABNORMAL [None]
  - JAUNDICE [None]
  - GAMMA-GLUTAMYLTRANSFERASE ABNORMAL [None]
  - BLOOD GLUCOSE ABNORMAL [None]
  - PLATELET COUNT ABNORMAL [None]
  - HEPATITIS [None]
  - BILIRUBIN CONJUGATED ABNORMAL [None]
  - HEPATIC STEATOSIS [None]
